FAERS Safety Report 9468230 (Version 1)
Quarter: 2013Q3

REPORT INFORMATION
  Report Type: Report from Study
  Country: US (occurrence: US)
  Receive Date: 20130821
  Receipt Date: 20130821
  Transmission Date: 20140515
  Serious: Yes (Death)
  Sender: FDA-Public Use
  Company Number: US-US-EMD SERONO, INC.-7232451

PATIENT
  Sex: Female

DRUGS (1)
  1. REBIF [Suspect]
     Indication: MULTIPLE SCLEROSIS
     Dates: start: 20120525, end: 201302

REACTIONS (3)
  - Chronic obstructive pulmonary disease [Fatal]
  - Neoplasm malignant [Fatal]
  - Multiple sclerosis [Fatal]
